FAERS Safety Report 4863006-4 (Version None)
Quarter: 2005Q4

REPORT INFORMATION
  Report Type: 
  Country: None (occurrence: None)
  Receive Date: 20051130
  Receipt Date: 20050920
  Transmission Date: 20060501
  Serious: No
  Sender: FDA-Public Use
  Company Number: FABR-11157

PATIENT
  Age: 38 Year
  Sex: Male
  Weight: 75 kg

DRUGS (8)
  1. FABRAZYME [Suspect]
     Indication: FABRY'S DISEASE
     Dosage: 70 MG Q2WKS IV
     Route: 042
     Dates: start: 20010131, end: 20050414
  2. CORTANCYL [Concomitant]
  3. NEORAL [Concomitant]
  4. KENZEN [Concomitant]
  5. ARANESP [Concomitant]
  6. ASPEGIC 1000 [Concomitant]
  7. ATARAX [Concomitant]
  8. PARACETAMOL [Concomitant]

REACTIONS (4)
  - HOT FLUSH [None]
  - MALAISE [None]
  - NAUSEA [None]
  - RASH [None]
